FAERS Safety Report 8907137 (Version 3)
Quarter: 2013Q1

REPORT INFORMATION
  Report Type: Spontaneous
  Country: US (occurrence: US)
  Receive Date: 20121114
  Receipt Date: 20130226
  Transmission Date: 20140127
  Serious: No
  Sender: FDA-Public Use
  Company Number: US-009507513-1211USA000583

PATIENT
  Sex: Male

DRUGS (4)
  1. PEG-INTRON [Suspect]
     Indication: HEPATITIS C
     Dosage: UNK
     Route: 058
     Dates: start: 20080720, end: 20090104
  2. PEG-INTRON [Suspect]
     Dosage: UNK
     Route: 058
  3. REBETOL [Suspect]
     Indication: HEPATITIS C
     Dosage: UNK
     Route: 048
     Dates: start: 20080720, end: 20090104
  4. REBETOL [Suspect]
     Dosage: UNK
     Route: 048

REACTIONS (5)
  - Thirst [Unknown]
  - Therapeutic response decreased [Unknown]
  - Depression [Unknown]
  - Depression [Unknown]
  - Depression [Unknown]
